FAERS Safety Report 16973689 (Version 5)
Quarter: 2022Q2

REPORT INFORMATION
  Report Type: Report from Study
  Country: HK (occurrence: None)
  Receive Date: 20191030
  Receipt Date: 20220414
  Transmission Date: 20220721
  Serious: Yes (Death, Hospitalization)
  Sender: FDA-Public Use
  Company Number: HK-ROCHE-2448028

PATIENT
  Age: 60 Year
  Sex: Male

DRUGS (4)
  1. ATEZOLIZUMAB [Suspect]
     Active Substance: ATEZOLIZUMAB
     Indication: Non-small cell lung cancer metastatic
     Dosage: LAST DOSE OF ATEZOLIZUMAB PRIOR THE ADVERSE EVENTS WAS 30/AUG/2019?ON 16/OCT/2019, THERAPY WITH ATEZ
     Route: 042
     Dates: start: 20190315, end: 20191016
  2. BEVACIZUMAB [Suspect]
     Active Substance: BEVACIZUMAB
     Indication: Non-small cell lung cancer metastatic
     Dosage: LAST DOSE OF BEVACIZUMAB PRIOR THE ADVERSE EVENTS WAS 30/AUG/2019?ON 16/OCT/2019, THERAPY WITH BEVAC
     Route: 042
     Dates: start: 20190315, end: 20191016
  3. CARBOPLATIN [Suspect]
     Active Substance: CARBOPLATIN
     Indication: Non-small cell lung cancer metastatic
     Route: 065
  4. PEMETREXED [Suspect]
     Active Substance: PEMETREXED
     Indication: Non-small cell lung cancer metastatic
     Route: 065

REACTIONS (9)
  - Fall [Not Recovered/Not Resolved]
  - Asthenia [Not Recovered/Not Resolved]
  - Cranial nerve palsies multiple [Not Recovered/Not Resolved]
  - Dysphagia [Not Recovered/Not Resolved]
  - Diabetes insipidus [Not Recovered/Not Resolved]
  - Metastases to meninges [Fatal]
  - Neuropathy peripheral [Fatal]
  - Neurological decompensation [Not Recovered/Not Resolved]
  - Disease progression [Fatal]

NARRATIVE: CASE EVENT DATE: 20190917
